FAERS Safety Report 9857907 (Version 1)
Quarter: 2014Q1

REPORT INFORMATION
  Report Type: Report from Study
  Country: US (occurrence: US)
  Receive Date: 20140131
  Receipt Date: 20140131
  Transmission Date: 20141002
  Serious: Yes (Hospitalization)
  Sender: FDA-Public Use
  Company Number: US-ROCHE-1339440

PATIENT
  Age: 47 Year
  Sex: Female
  Weight: 50.8 kg

DRUGS (10)
  1. TRASTUZUMAB [Suspect]
     Indication: BREAST CANCER
     Route: 042
     Dates: start: 2013
  2. RITUXIMAB [Suspect]
     Indication: MULTIPLE SCLEROSIS
     Route: 042
     Dates: start: 201308
  3. AMPYRA [Suspect]
     Indication: PRODUCT USED FOR UNKNOWN INDICATION
     Route: 048
  4. GABAPENTIN [Concomitant]
     Route: 065
  5. DOCULACE [Concomitant]
  6. VITAMIN B12 [Concomitant]
  7. DETROL [Concomitant]
  8. BACLOFEN [Concomitant]
  9. TRAMADOL [Concomitant]
  10. WELLBUTRIN [Concomitant]

REACTIONS (5)
  - Convulsion [Recovered/Resolved]
  - Breast cancer [Not Recovered/Not Resolved]
  - Multiple sclerosis relapse [Recovered/Resolved]
  - Gait disturbance [Recovering/Resolving]
  - Mastectomy [Not Recovered/Not Resolved]
